FAERS Safety Report 9976904 (Version 1)
Quarter: 2014Q1

REPORT INFORMATION
  Report Type: Report from Study
  Country: US (occurrence: US)
  Receive Date: 20140306
  Receipt Date: 20140306
  Transmission Date: 20141002
  Serious: Yes (Hospitalization)
  Sender: FDA-Public Use
  Company Number: US-ABBVIE-13P-163-1167765-00

PATIENT
  Age: 66 Year
  Sex: Female
  Weight: 81.72 kg

DRUGS (15)
  1. HUMIRA [Suspect]
     Indication: RHEUMATOID ARTHRITIS
     Route: 058
     Dates: start: 201308, end: 201309
  2. XANAX [Concomitant]
     Indication: ANXIETY
  3. VICODIN APAP [Concomitant]
     Indication: ARTHRALGIA
  4. SYMBACORT [Concomitant]
     Indication: CHRONIC OBSTRUCTIVE PULMONARY DISEASE
  5. SPIRIVIA [Concomitant]
     Indication: CHRONIC OBSTRUCTIVE PULMONARY DISEASE
  6. THEOPHYLLINE [Concomitant]
     Indication: CHRONIC OBSTRUCTIVE PULMONARY DISEASE
  7. XOPINEX [Concomitant]
     Indication: CHRONIC OBSTRUCTIVE PULMONARY DISEASE
  8. DETROL LA [Concomitant]
     Indication: HYPERTONIC BLADDER
  9. C-DOMPERIDONE [Concomitant]
     Indication: PRODUCT USED FOR UNKNOWN INDICATION
  10. PROMETHAZINE [Concomitant]
     Indication: NAUSEA
  11. OMEPRAZOLE [Concomitant]
     Indication: GASTROOESOPHAGEAL REFLUX DISEASE
  12. SIMVASTATIN [Concomitant]
     Indication: BLOOD CHOLESTEROL INCREASED
  13. PREDNISONE [Concomitant]
     Indication: RHEUMATOID ARTHRITIS
  14. AMLODIPINE [Concomitant]
     Indication: HYPERTENSION
  15. ESCITALOPRAM OXALATE [Concomitant]
     Indication: DEPRESSION

REACTIONS (2)
  - Meningitis viral [Recovered/Resolved]
  - Headache [Recovered/Resolved]
